FAERS Safety Report 5657891-6 (Version None)
Quarter: 2008Q1

REPORT INFORMATION
  Report Type: 
  Country: None (occurrence: None)
  Receive Date: 20080305
  Receipt Date: 20080221
  Transmission Date: 20080703
  Serious: Yes (Other)
  Sender: FDA-Public Use
  Company Number: TCI2001A00057

PATIENT
  Age: 57 Year
  Sex: Female

DRUGS (9)
  1. LANSOPRAZOLE [Suspect]
  2. TAKEPRON CAPSULES [Suspect]
     Indication: GASTRIC ULCER
     Dosage: 30 MG (30 MG, 1 IN 1 D) PER ORAL
     Route: 048
     Dates: start: 20000417, end: 20000609
  3. PROGRAF [Suspect]
     Indication: RENAL TRANSPLANT
     Dosage: SEE IMAGE
     Route: 048
     Dates: start: 20000329, end: 20000419
  4. PROGRAF [Suspect]
     Indication: RENAL TRANSPLANT
     Dosage: SEE IMAGE
     Route: 048
     Dates: start: 20000420
  5. CELLCEPT [Concomitant]
  6. PREDNISOLONE [Concomitant]
  7. SUCRALFATE [Concomitant]
  8. AZULENE SODIUM SULFONATE/L-GLUTAMINE [Concomitant]
  9. ALMINUM HYDROXIDE/MAGNESIUM HYDROXIDE [Concomitant]

REACTIONS (3)
  - DRUG INTERACTION [None]
  - DRUG LEVEL INCREASED [None]
  - GASTRIC ULCER [None]
